FAERS Safety Report 7820319-1 (Version None)
Quarter: 2011Q4

REPORT INFORMATION
  Report Type: 
  Country: None (occurrence: None)
  Receive Date: 20111013
  Receipt Date: 20111007
  Transmission Date: 20120403
  Serious: Yes (Hospitalization)
  Sender: FDA-Public Use
  Company Number: DKLU1073743

PATIENT
  Age: 14 Year
  Sex: Female

DRUGS (4)
  1. KEPPRA [Concomitant]
  2. TOPAMAX [Concomitant]
  3. SABRIL [Suspect]
     Indication: COMPLEX PARTIAL SEIZURES
     Dosage: 500 MG MILLIGRAM(S), Q AM, ORAL; 1000 MG MILLIGRAM(S), Q PM, ORAL
     Route: 048
     Dates: start: 20110901, end: 20111003
  4. PHENOBARBITAL TAB [Concomitant]

REACTIONS (4)
  - CONDITION AGGRAVATED [None]
  - COMPLEX PARTIAL SEIZURES [None]
  - RESPIRATORY DISTRESS [None]
  - URINARY TRACT INFECTION [None]
